FAERS Safety Report 22359572 (Version 1)
Quarter: 2023Q2

REPORT INFORMATION
  Report Type: Spontaneous
  Country: BR (occurrence: BR)
  Receive Date: 20230524
  Receipt Date: 20230524
  Transmission Date: 20230721
  Serious: Yes (Other)
  Sender: FDA-Public Use
  Company Number: BR-MLMSERVICE-20230511-4273802-1

PATIENT
  Age: 58 Year
  Sex: Female

DRUGS (3)
  1. HYDROXYCHLOROQUINE [Suspect]
     Active Substance: HYDROXYCHLOROQUINE
     Indication: Systemic lupus erythematosus
  2. PREDNISONE [Suspect]
     Active Substance: PREDNISONE
     Indication: Systemic lupus erythematosus
  3. PREDNISONE [Suspect]
     Active Substance: PREDNISONE
     Indication: Systemic lupus erythematosus

REACTIONS (8)
  - Dermabrasion [Recovered/Resolved with Sequelae]
  - Nose deformity [Not Recovered/Not Resolved]
  - Butterfly rash [Recovering/Resolving]
  - Sporotrichosis [Recovered/Resolved with Sequelae]
  - Nasal necrosis [Recovered/Resolved with Sequelae]
  - Self-medication [Unknown]
  - Skin haemorrhage [Recovering/Resolving]
  - Granuloma [Recovered/Resolved with Sequelae]
